FAERS Safety Report 8478261-1 (Version None)
Quarter: 2012Q2

REPORT INFORMATION
  Report Type: 
  Country: None (occurrence: None)
  Receive Date: 20120629
  Receipt Date: 20120625
  Transmission Date: 20120825
  Serious: No
  Sender: FDA-Public Use
  Company Number: US-BAYER-2012-063928

PATIENT
  Age: 45 Year
  Sex: Male
  Weight: 104 kg

DRUGS (4)
  1. ALEVE (CAPLET) [Suspect]
     Indication: BACK PAIN
  2. METFORMIN HCL [Concomitant]
  3. METOPROLOL SUCCINATE [Concomitant]
  4. AMLODIPINE [Concomitant]

REACTIONS (5)
  - PRURITUS [None]
  - NO ADVERSE EVENT [None]
  - BLISTER [None]
  - RASH [None]
  - URTICARIA [None]
